FAERS Safety Report 8763656 (Version 1)
Quarter: 2012Q4

REPORT INFORMATION
  Report Type: Spontaneous
  Country: US (occurrence: None)
  Receive Date: 20120831
  Receipt Date: 20120831
  Transmission Date: 20130627
  Serious: No
  Sender: FDA-Public Use
  Company Number: None

PATIENT
  Age: 50 Year
  Sex: Female
  Weight: 83.92 kg

DRUGS (1)
  1. LEVOFLOXACIN HYDRATE [Suspect]
     Indication: SINUS INFECTION
     Dosage: 1 TABLET A DAY
     Dates: start: 20120827, end: 20120829

REACTIONS (9)
  - Arthralgia [None]
  - Pain in extremity [None]
  - Joint swelling [None]
  - Arthralgia [None]
  - Musculoskeletal pain [None]
  - Asthenia [None]
  - Arthralgia [None]
  - Myalgia [None]
  - Decreased appetite [None]
